FAERS Safety Report 4515422-8 (Version None)
Quarter: 2004Q4

REPORT INFORMATION
  Report Type: 
  Country: None (occurrence: None)
  Receive Date: 20041126
  Receipt Date: 20041117
  Transmission Date: 20050328
  Serious: Yes (Other)
  Sender: FDA-Public Use
  Company Number: K200401785

PATIENT
  Age: 19 Year
  Sex: Female

DRUGS (5)
  1. SONATA [Suspect]
     Indication: INSOMNIA
     Dosage: 10 MG NASAL
     Route: 045
     Dates: start: 20040713, end: 20041101
  2. EFFEXOR XR [Concomitant]
  3. LEXAPRO [Concomitant]
  4. IMITREX ^CERENEX^ (SUMATRIPTAN SUCCINATE) [Concomitant]
  5. INSULIM PUMP (INSULIN) [Concomitant]

REACTIONS (3)
  - DRUG ABUSER [None]
  - EUPHORIC MOOD [None]
  - MEDICATION ERROR [None]
